FAERS Safety Report 8802341 (Version 1)
Quarter: 2012Q4

REPORT INFORMATION
  Report Type: 
  Country: SC (occurrence: SC)
  Receive Date: 20120921
  Receipt Date: 20120921
  Transmission Date: 20130627
  Serious: Yes (Death)
  Sender: FDA-Public Use
  Company Number: PHHY2010SC094535

PATIENT
  Sex: Female

DRUGS (1)
  1. GLIVEC [Suspect]
     Indication: CHRONIC MYELOID LEUKAEMIA
     Dates: start: 20100810

REACTIONS (1)
  - Death [Fatal]
